FAERS Safety Report 8057232-3 (Version None)
Quarter: 2012Q1

REPORT INFORMATION
  Report Type: 
  Country: None (occurrence: None)
  Receive Date: 20120119
  Receipt Date: 20120113
  Transmission Date: 20120608
  Serious: Yes (Other)
  Sender: FDA-Public Use
  Company Number: PHHY2012BR003809

PATIENT
  Sex: Female

DRUGS (6)
  1. HYDROCHLOROTHIAZIDE [Concomitant]
     Indication: FLUID RETENTION
     Dosage: 2 TABLET DAILY
  2. DIOVAN HCT [Suspect]
     Dosage: 2 DF (160/12.5MG) DAILY
     Route: 048
  3. DIOVAN HCT [Suspect]
     Indication: HYPERTENSION
     Dosage: 1 DF (160/12.5MG) DAILY
     Route: 048
     Dates: start: 20111001
  4. PROPRANOLOL [Concomitant]
     Indication: CARDIAC DISORDER
     Dosage: 40 MG, DAILY
  5. SIMVASTATIN [Concomitant]
     Indication: BLOOD CHOLESTEROL INCREASED
     Dosage: 1 DF, DAILY
  6. VALIUM [Concomitant]
     Indication: SLEEP DISORDER
     Dosage: 0.5 DF, DAILY

REACTIONS (2)
  - VENOUS OCCLUSION [None]
  - BLOOD PRESSURE INCREASED [None]
